FAERS Safety Report 8221008-4 (Version None)
Quarter: 2012Q1

REPORT INFORMATION
  Report Type: 
  Country: None (occurrence: None)
  Receive Date: 20120320
  Receipt Date: 20120314
  Transmission Date: 20120608
  Serious: Yes (Other)
  Sender: FDA-Public Use
  Company Number: JP-PFIZER INC-2012067699

PATIENT
  Age: 62 Year
  Sex: Female

DRUGS (6)
  1. SULPIRIDE [Suspect]
     Indication: DEPRESSION
     Dosage: 100MG
  2. MIRTAZAPINE [Suspect]
     Dosage: 30MG
  3. ZOLOFT [Suspect]
     Dosage: 50 MG
     Route: 048
  4. MIRTAZAPINE [Suspect]
     Indication: DEPRESSION
     Dosage: 15MG
  5. PAROXETINE HCL [Suspect]
     Indication: DEPRESSION
     Dosage: 20 MG
  6. ZOLOFT [Suspect]
     Indication: DEPRESSION
     Dosage: 25 MG
     Route: 048

REACTIONS (7)
  - DYSURIA [None]
  - INSOMNIA [None]
  - STATUS EPILEPTICUS [None]
  - DECREASED APPETITE [None]
  - CHILLS [None]
  - CONVULSION [None]
  - HEADACHE [None]
